FAERS Safety Report 11872042 (Version 2)
Quarter: 2016Q3

REPORT INFORMATION
  Report Type: Other
  Country: FR (occurrence: FR)
  Receive Date: 20151228
  Receipt Date: 20160714
  Transmission Date: 20161109
  Serious: Yes (Other)
  Sender: FDA-Public Use
  Company Number: FR-TAKEDA-2015TUS018517

PATIENT
  Age: 24 Year
  Sex: Female

DRUGS (1)
  1. ENTYVIO [Suspect]
     Active Substance: VEDOLIZUMAB
     Indication: CROHN^S DISEASE
     Dosage: 300 MG, UNK
     Route: 042
     Dates: start: 20150127

REACTIONS (2)
  - Autoimmune hepatitis [Recovering/Resolving]
  - Overlap syndrome [Recovering/Resolving]

NARRATIVE: CASE EVENT DATE: 20150421
